FAERS Safety Report 17254786 (Version 3)
Quarter: 2020Q1

REPORT INFORMATION
  Report Type: Report from Study
  Country: US (occurrence: US)
  Receive Date: 20200109
  Receipt Date: 20200303
  Transmission Date: 20200409
  Serious: Yes (Hospitalization, Other)
  Sender: FDA-Public Use
  Company Number: US-TAKEDA-2020TUS001434

PATIENT
  Sex: Female
  Weight: 59.41 kg

DRUGS (1)
  1. BORTEZOMIB. [Suspect]
     Active Substance: BORTEZOMIB
     Indication: PLASMA CELL MYELOMA
     Dosage: 2 MILLIGRAM/SQ. METER
     Route: 058

REACTIONS (3)
  - Pneumonia pneumococcal [Unknown]
  - Malaise [Unknown]
  - Meningitis [Unknown]
